FAERS Safety Report 5420698-9 (Version None)
Quarter: 2007Q3

REPORT INFORMATION
  Report Type: 
  Country: None (occurrence: None)
  Receive Date: 20070816
  Receipt Date: 20070719
  Transmission Date: 20080115
  Serious: Yes (Other)
  Sender: FDA-Public Use
  Company Number: 6036272

PATIENT
  Age: 21 Year
  Sex: Male

DRUGS (1)
  1. SERTRALINE [Suspect]
     Indication: OBSESSIVE-COMPULSIVE DISORDER
     Dosage: (200 MG)
     Route: 048
     Dates: start: 20070518, end: 20070614

REACTIONS (1)
  - GRAND MAL CONVULSION [None]
